FAERS Safety Report 13092869 (Version 1)
Quarter: 2017Q1

REPORT INFORMATION
  Report Type: Spontaneous
  Country: US (occurrence: US)
  Receive Date: 20170106
  Receipt Date: 20170106
  Transmission Date: 20170428
  Serious: No
  Sender: FDA-Public Use
  Company Number: US-JNJFOC-20161221839

PATIENT
  Age: 91 Year
  Sex: Male
  Weight: 77.11 kg

DRUGS (1)
  1. TYLENOL EXTRA STRENGTH [Suspect]
     Active Substance: ACETAMINOPHEN
     Indication: HEADACHE
     Dosage: ATLEAST EVERY 8 HOURS
     Route: 048
     Dates: end: 20161222

REACTIONS (2)
  - Expired product administered [Unknown]
  - Inappropriate schedule of drug administration [Unknown]
